FAERS Safety Report 7465782-3 (Version None)
Quarter: 2011Q1

REPORT INFORMATION
  Report Type: 
  Country: None (occurrence: None)
  Receive Date: 20110302
  Receipt Date: 20101108
  Transmission Date: 20110831
  Serious: Yes (Other)
  Sender: FDA-Public Use
  Company Number: 163-21880-10080516

PATIENT
  Age: 84 Year
  Sex: Male

DRUGS (7)
  1. GABAPENTIN [Concomitant]
  2. REVLIMID [Suspect]
  3. PROCRIT [Concomitant]
  4. CELEXA [Concomitant]
  5. PRILOSEC [Concomitant]
  6. REVLIMID [Suspect]
     Indication: MULTIPLE MYELOMA
     Dosage: 10 MG, 1 IN 1 D, PO, 15 MG, PO
     Route: 048
     Dates: start: 20091002, end: 20101001
  7. METOPROLOL TARTRATE [Concomitant]

REACTIONS (4)
  - NEUTROPHIL COUNT DECREASED [None]
  - FATIGUE [None]
  - LETHARGY [None]
  - RENAL DISORDER [None]
